FAERS Safety Report 11393717 (Version 4)
Quarter: 2016Q1

REPORT INFORMATION
  Report Type: Report from Study
  Country: JP (occurrence: JP)
  Receive Date: 20150819
  Receipt Date: 20160229
  Transmission Date: 20160525
  Serious: Yes (Other)
  Sender: FDA-Public Use
  Company Number: JP-UCBSA-2015026104

PATIENT
  Age: 74 Year
  Sex: Female

DRUGS (12)
  1. ROTIGOTINE [Suspect]
     Active Substance: ROTIGOTINE
     Indication: PARKINSON^S DISEASE
     Dosage: 2 MG DAILY DOSE
     Route: 062
     Dates: start: 20150211, end: 20150309
  2. ROTIGOTINE [Suspect]
     Active Substance: ROTIGOTINE
     Dosage: 4 MG DAILY DOSE
     Route: 062
     Dates: start: 20150310
  3. EDIROL [Concomitant]
     Active Substance: ELDECALCITOL
     Indication: PRODUCT USED FOR UNKNOWN INDICATION
     Dosage: UNK
     Dates: start: 20150804
  4. FAMOTIDINE. [Concomitant]
     Active Substance: FAMOTIDINE
     Indication: SUDDEN HEARING LOSS
     Dosage: UNK
  5. NEODOPASTON [Concomitant]
     Active Substance: CARBIDOPA\LEVODOPA
     Indication: PARKINSON^S DISEASE
     Dosage: UNK
     Dates: start: 20140722
  6. COMTAN [Suspect]
     Active Substance: ENTACAPONE
     Indication: PARKINSON^S DISEASE
     Dosage: 100 MG, 3X/DAY (TID)
     Route: 048
     Dates: start: 20151127, end: 20160128
  7. IRBESARTAN. [Concomitant]
     Active Substance: IRBESARTAN
     Indication: PRODUCT USED FOR UNKNOWN INDICATION
     Dosage: UNK IN COMBINATION WITH AMLODIPINE BESILATE
     Dates: start: 20131218, end: 20150804
  8. HEPARINOID [Concomitant]
     Active Substance: CHONDROITIN SULFATE (BOVINE)
     Indication: PROPHYLAXIS
     Dosage: UNK
     Dates: start: 20150211
  9. AMLODIPINE BESILATE [Concomitant]
     Active Substance: AMLODIPINE BESYLATE
     Indication: PRODUCT USED FOR UNKNOWN INDICATION
     Dosage: UNK IN COMBINATION WITH IRBESARTAN
     Dates: start: 20131218, end: 20150804
  10. MECOBALAMIN [Concomitant]
     Active Substance: METHYLCOBALAMIN
     Indication: SUDDEN HEARING LOSS
     Dosage: UNK
  11. ACTONEL [Concomitant]
     Active Substance: RISEDRONATE SODIUM
     Indication: PRODUCT USED FOR UNKNOWN INDICATION
     Dosage: UNK
     Dates: start: 20140624
  12. ADENOSINE TRIPHOSPHATE, DISODIUM SALT [Concomitant]
     Indication: SUDDEN HEARING LOSS
     Dosage: UNK

REACTIONS (5)
  - Haemorrhoids [Not Recovered/Not Resolved]
  - Hepatic function abnormal [Recovered/Resolved]
  - Anal prolapse [Not Recovered/Not Resolved]
  - Sudden hearing loss [Recovered/Resolved]
  - Somnolence [Recovered/Resolved]

NARRATIVE: CASE EVENT DATE: 20150625
